FAERS Safety Report 25317987 (Version 1)
Quarter: 2025Q2

REPORT INFORMATION
  Report Type: Spontaneous
  Country: US (occurrence: US)
  Receive Date: 20250515
  Receipt Date: 20250515
  Transmission Date: 20250716
  Serious: Yes (Other)
  Sender: MYLAN
  Company Number: US-MYLANLABS-2025M1040985

PATIENT
  Age: 58 Year
  Sex: Female

DRUGS (36)
  1. GABAPENTIN [Suspect]
     Active Substance: GABAPENTIN
     Indication: Neuralgia
  2. GABAPENTIN [Suspect]
     Active Substance: GABAPENTIN
     Route: 065
  3. GABAPENTIN [Suspect]
     Active Substance: GABAPENTIN
     Route: 065
  4. GABAPENTIN [Suspect]
     Active Substance: GABAPENTIN
  5. PREGABALIN [Suspect]
     Active Substance: PREGABALIN
     Indication: Neuralgia
  6. PREGABALIN [Suspect]
     Active Substance: PREGABALIN
     Route: 065
  7. PREGABALIN [Suspect]
     Active Substance: PREGABALIN
     Route: 065
  8. PREGABALIN [Suspect]
     Active Substance: PREGABALIN
  9. METHADONE [Suspect]
     Active Substance: METHADONE HYDROCHLORIDE
     Indication: Neuralgia
  10. METHADONE [Suspect]
     Active Substance: METHADONE HYDROCHLORIDE
     Route: 065
  11. METHADONE [Suspect]
     Active Substance: METHADONE HYDROCHLORIDE
     Route: 065
  12. METHADONE [Suspect]
     Active Substance: METHADONE HYDROCHLORIDE
  13. TRAMADOL [Suspect]
     Active Substance: TRAMADOL
     Indication: Neuralgia
  14. TRAMADOL [Suspect]
     Active Substance: TRAMADOL
     Route: 065
  15. TRAMADOL [Suspect]
     Active Substance: TRAMADOL
     Route: 065
  16. TRAMADOL [Suspect]
     Active Substance: TRAMADOL
  17. TAPENTADOL [Suspect]
     Active Substance: TAPENTADOL
     Indication: Neuralgia
  18. TAPENTADOL [Suspect]
     Active Substance: TAPENTADOL
     Route: 065
  19. TAPENTADOL [Suspect]
     Active Substance: TAPENTADOL
     Route: 065
  20. TAPENTADOL [Suspect]
     Active Substance: TAPENTADOL
  21. DULOXETINE [Suspect]
     Active Substance: DULOXETINE
     Indication: Neuralgia
  22. DULOXETINE [Suspect]
     Active Substance: DULOXETINE
     Route: 065
  23. DULOXETINE [Suspect]
     Active Substance: DULOXETINE
     Route: 065
  24. DULOXETINE [Suspect]
     Active Substance: DULOXETINE
  25. VITAMIN B COMPLEX NOS [Suspect]
     Active Substance: CYANOCOBALAMIN\PYRIDOXINE HYDROCHLORIDE\RIBOFLAVIN\SODIUM PANTOTHENATE\THIAMINE HYDROCHLORIDE\VITAMI
     Indication: Neuralgia
  26. VITAMIN B COMPLEX NOS [Suspect]
     Active Substance: CYANOCOBALAMIN\PYRIDOXINE HYDROCHLORIDE\RIBOFLAVIN\SODIUM PANTOTHENATE\THIAMINE HYDROCHLORIDE\VITAMI
     Route: 065
  27. VITAMIN B COMPLEX NOS [Suspect]
     Active Substance: CYANOCOBALAMIN\PYRIDOXINE HYDROCHLORIDE\RIBOFLAVIN\SODIUM PANTOTHENATE\THIAMINE HYDROCHLORIDE\VITAMI
     Route: 065
  28. VITAMIN B COMPLEX NOS [Suspect]
     Active Substance: CYANOCOBALAMIN\PYRIDOXINE HYDROCHLORIDE\RIBOFLAVIN\SODIUM PANTOTHENATE\THIAMINE HYDROCHLORIDE\VITAMI
  29. MENTHOL [Suspect]
     Active Substance: MENTHOL
     Indication: Neuralgia
  30. MENTHOL [Suspect]
     Active Substance: MENTHOL
     Route: 065
  31. MENTHOL [Suspect]
     Active Substance: MENTHOL
     Route: 065
  32. MENTHOL [Suspect]
     Active Substance: MENTHOL
  33. ALPHA LIPOIC ACID [Suspect]
     Active Substance: .ALPHA.-LIPOIC ACID
     Indication: Neuralgia
  34. ALPHA LIPOIC ACID [Suspect]
     Active Substance: .ALPHA.-LIPOIC ACID
     Route: 065
  35. ALPHA LIPOIC ACID [Suspect]
     Active Substance: .ALPHA.-LIPOIC ACID
     Route: 065
  36. ALPHA LIPOIC ACID [Suspect]
     Active Substance: .ALPHA.-LIPOIC ACID

REACTIONS (1)
  - Drug ineffective [Unknown]
